FAERS Safety Report 7289125-3 (Version None)
Quarter: 2011Q1

REPORT INFORMATION
  Report Type: 
  Country: None (occurrence: None)
  Receive Date: 20110211
  Receipt Date: 20110208
  Transmission Date: 20110831
  Serious: No
  Sender: FDA-Public Use
  Company Number: US-PFIZER INC-2011028839

PATIENT
  Age: 52 Year
  Sex: Female

DRUGS (2)
  1. LOPID [Suspect]
     Dosage: 600 MG, UNK
  2. LIPITOR [Suspect]
     Dosage: 10 MG, UNK

REACTIONS (1)
  - MYALGIA [None]
